FAERS Safety Report 22326189 (Version 1)
Quarter: 2023Q2

REPORT INFORMATION
  Report Type: Report from Study
  Country: US (occurrence: US)
  Receive Date: 20230516
  Receipt Date: 20230516
  Transmission Date: 20230721
  Serious: Yes (Hospitalization, Other)
  Sender: FDA-Public Use
  Company Number: US-JAZZ-2020-US-017321

PATIENT
  Sex: Female

DRUGS (38)
  1. XYREM [Suspect]
     Active Substance: SODIUM OXYBATE
     Indication: Narcolepsy
     Dosage: 1.5 GRAM, BID
     Route: 048
     Dates: start: 201112, end: 201204
  2. XYREM [Suspect]
     Active Substance: SODIUM OXYBATE
     Indication: Cataplexy
     Dosage: DOSE ADJUSTMENT
     Route: 048
     Dates: start: 201204, end: 201308
  3. XYREM [Suspect]
     Active Substance: SODIUM OXYBATE
     Indication: Somnolence
     Dosage: 4.5 GRAM, BID
     Route: 048
     Dates: start: 201308, end: 201506
  4. XYREM [Suspect]
     Active Substance: SODIUM OXYBATE
     Dosage: 4.5 GRAM, BID
     Route: 048
     Dates: start: 201801, end: 201904
  5. XYREM [Suspect]
     Active Substance: SODIUM OXYBATE
     Dosage: 2.25 GRAM, BID
     Route: 048
     Dates: start: 202003, end: 202006
  6. XYREM [Suspect]
     Active Substance: SODIUM OXYBATE
     Dosage: 3.75 GRAM, BID
     Route: 048
     Dates: start: 202006, end: 202012
  7. XYREM [Suspect]
     Active Substance: SODIUM OXYBATE
     Dosage: 2.25 GRAM, BID
     Route: 048
     Dates: start: 202012
  8. XYREM [Suspect]
     Active Substance: SODIUM OXYBATE
     Dosage: 6ML BD IST DOSE BEDTIME 2ND DOSE 4HRS LATER
  9. TYLENOL [Concomitant]
     Active Substance: ACETAMINOPHEN
     Dosage: 2TABS TID SOS FOR PAIN
     Dates: start: 20160429
  10. WELLBUTRIN [Concomitant]
     Active Substance: BUPROPION HYDROCHLORIDE
     Dosage: 2 TABS BID
     Dates: start: 20230407
  11. LOTRISONE [Concomitant]
     Active Substance: BETAMETHASONE DIPROPIONATE\CLOTRIMAZOLE
     Dosage: APPLY TOPICALLY BD
  12. ADDERALL [Concomitant]
     Active Substance: AMPHETAMINE ASPARTATE\AMPHETAMINE SULFATE\DEXTROAMPHETAMINE SACCHARATE\DEXTROAMPHETAMINE SULFATE
     Dosage: 1 TAB TID
  13. LEXAPRO [Concomitant]
     Active Substance: ESCITALOPRAM OXALATE
     Dosage: 1 TAB OD
  14. LUNESTA [Concomitant]
     Active Substance: ESZOPICLONE
     Dosage: 1 TAB OD
  15. DIFLUCAN [Concomitant]
     Active Substance: FLUCONAZOLE
     Dosage: 1 OD
  16. FOLIC ACID [Concomitant]
     Active Substance: FOLIC ACID
     Dosage: 1 OD
  17. GABAPENTIN [Concomitant]
     Active Substance: GABAPENTIN
  18. HYDROQUINONE [Concomitant]
     Active Substance: HYDROQUINONE
     Dosage: QAM TO DARK AREAS
     Dates: start: 20220125
  19. IPRATROPIUM BROMIDE [Concomitant]
     Active Substance: IPRATROPIUM BROMIDE\IPRATROPIUM BROMIDE ANHYDROUS
     Dosage: TID
     Dates: start: 20230103
  20. LATUDA [Concomitant]
     Active Substance: LURASIDONE HYDROCHLORIDE
     Dosage: 1 OD
     Dates: start: 20230316
  21. MINERALS\VITAMINS [Concomitant]
     Active Substance: MINERALS\VITAMINS
     Dosage: 1 OD
  22. NARCAN [Concomitant]
     Active Substance: NALOXONE HYDROCHLORIDE
     Dosage: 2 SPRAY
  23. NAPROXEN [Concomitant]
     Active Substance: NAPROXEN
     Dosage: 220MG SOS BID
  24. MACRODANTIN [Concomitant]
     Active Substance: NITROFURANTOIN
     Dosage: 1 OD
  25. MICROGESTIN [Concomitant]
     Active Substance: ETHINYL ESTRADIOL\NORETHINDRONE ACETATE
     Dosage: 1 TAB OD
  26. PANTOPRAZOLE [Concomitant]
     Active Substance: PANTOPRAZOLE
     Dosage: 1 OD BEFORE BREAKFAST
  27. PRAZOSIN [Concomitant]
     Active Substance: PRAZOSIN
  28. PROPRANOLOL [Concomitant]
     Active Substance: PROPRANOLOL HYDROCHLORIDE
     Dosage: 1 TAB TID
  29. SPIRONOLACTONE [Concomitant]
     Active Substance: SPIRONOLACTONE
     Dosage: 1 TAB BD
     Dates: start: 20230107
  30. TRAMADOL [Concomitant]
     Active Substance: TRAMADOL
     Dosage: 2 TAB OD SOS
  31. TRETINOIN [Concomitant]
     Active Substance: TRETINOIN
     Dosage: APPLY PEA SIZE AMOUNT HS
  32. VENTOLIN HFA [Concomitant]
     Active Substance: ALBUTEROL SULFATE
     Dosage: 2 PUFF /4 HRS SOS
  33. FLONASE [Concomitant]
     Active Substance: FLUTICASONE PROPIONATE
     Dosage: 2 SPRAY EACH NOSTRIL
  34. MIRALAX [Concomitant]
     Active Substance: POLYETHYLENE GLYCOL 3350
     Dosage: TAKE 17G OD
  35. MUPIROCIN [Concomitant]
     Active Substance: MUPIROCIN
     Dosage: APPLY BETWEEN LEFT INDEX FINGER OPEN AREA BID
  36. CORTISONE ACETATE [Concomitant]
     Active Substance: CORTISONE ACETATE
     Dosage: UNK
     Dates: start: 20151028
  37. METHYLPHENIDATE [Concomitant]
     Active Substance: METHYLPHENIDATE
     Dosage: UNK
     Dates: start: 20151028
  38. IMITREX [Concomitant]
     Active Substance: SUMATRIPTAN SUCCINATE

REACTIONS (7)
  - Suicidal ideation [Recovered/Resolved]
  - Suicide attempt [Recovered/Resolved]
  - Alcohol abuse [Recovered/Resolved]
  - Hospitalisation [Unknown]
  - Vaginal infection [Unknown]
  - COVID-19 [Recovered/Resolved]
  - Product administration interrupted [Unknown]

NARRATIVE: CASE EVENT DATE: 20200101
